FAERS Safety Report 10759849 (Version 2)
Quarter: 2015Q1

REPORT INFORMATION
  Report Type: Other
  Country: DE (occurrence: DE)
  Receive Date: 20150203
  Receipt Date: 20150302
  Transmission Date: 20150721
  Serious: Yes (Congenital Anomaly, Other)
  Sender: FDA-Public Use
  Company Number: DE-MYLANLABS-2015M1001983

PATIENT

DRUGS (5)
  1. CLOTRIMAZOLE. [Concomitant]
     Active Substance: CLOTRIMAZOLE
     Indication: VULVOVAGINAL MYCOTIC INFECTION
     Dosage: UNK
     Route: 064
     Dates: start: 20140220, end: 20140225
  2. MAGNESIUM [Concomitant]
     Active Substance: MAGNESIUM
     Indication: SELF-MEDICATION
     Dosage: 525 [MG/D (175) ]
     Route: 064
     Dates: start: 20140522, end: 20140701
  3. CITALOPRAM [Suspect]
     Active Substance: CITALOPRAM HYDROBROMIDE
     Indication: DEPRESSION
     Dosage: 40 [MG/D ]/ DOSAGE REDUCTION FROM GW 36
     Route: 064
     Dates: start: 20131004, end: 20140711
  4. OPTIGRAV [Concomitant]
     Indication: PROPHYLAXIS OF NEURAL TUBE DEFECT
     Dosage: 0.4 MG, QD
     Route: 064
     Dates: start: 20131004, end: 20140722
  5. (S)-MILCHS?URE [Concomitant]
     Indication: PROPHYLAXIS OF VAGINAL FLORA IMBALANCE
     Dosage: UNK
     Route: 064
     Dates: start: 20140226, end: 20140304

REACTIONS (3)
  - Kidney duplex [Not Recovered/Not Resolved]
  - Oxygen saturation abnormal [Recovered/Resolved]
  - Foetal exposure during pregnancy [Unknown]

NARRATIVE: CASE EVENT DATE: 20140722
